FAERS Safety Report 5314010-3 (Version None)
Quarter: 2007Q2

REPORT INFORMATION
  Report Type: 
  Country: None (occurrence: None)
  Receive Date: 20070501
  Receipt Date: 20070420
  Transmission Date: 20071010
  Serious: Yes (Death, Hospitalization)
  Sender: FDA-Public Use
  Company Number: US-ELI_LILLY_AND_COMPANY-US200704004972

PATIENT
  Age: 46 Year
  Sex: Female

DRUGS (1)
  1. HUMALOG [Suspect]
     Indication: DIABETES MELLITUS
     Dosage: UNK, UNK
     Dates: end: 20060101

REACTIONS (9)
  - ANOXIA [None]
  - BLOOD GLUCOSE INCREASED [None]
  - CARDIAC ARREST [None]
  - COMA [None]
  - COMPLICATIONS OF TRANSPLANTED PANCREAS [None]
  - DIABETIC NEUROPATHY [None]
  - PANCREAS TRANSPLANT [None]
  - PYREXIA [None]
  - REMOVAL OF TRANSPLANTED ORGAN [None]
